FAERS Safety Report 19015830 (Version 7)
Quarter: 2024Q3

REPORT INFORMATION
  Report Type: Report from Study
  Country: CA (occurrence: CA)
  Receive Date: 20210316
  Receipt Date: 20240724
  Transmission Date: 20241016
  Serious: Yes (Hospitalization)
  Sender: TAKEDA
  Company Number: CA-TAKEDA-2020TUS013302

PATIENT
  Age: 87 Year
  Sex: Female

DRUGS (3)
  1. BRIGATINIB [Suspect]
     Active Substance: BRIGATINIB
     Indication: Non-small cell lung cancer metastatic
     Dosage: 60 MILLIGRAM, QD
     Route: 048
     Dates: start: 20191126
  2. BRIGATINIB [Suspect]
     Active Substance: BRIGATINIB
     Dosage: 90 MILLIGRAM
     Route: 048
  3. BRIGATINIB [Suspect]
     Active Substance: BRIGATINIB
     Dosage: 60 MILLIGRAM
     Route: 048

REACTIONS (9)
  - Fall [Unknown]
  - Vomiting [Unknown]
  - Nausea [Unknown]
  - COVID-19 [Unknown]
  - Ear infection [Unknown]
  - Quality of life decreased [Unknown]
  - Fatigue [Unknown]
  - Dizziness [Unknown]
  - Asthenia [Unknown]

NARRATIVE: CASE EVENT DATE: 20210201
